FAERS Safety Report 5120937-8 (Version None)
Quarter: 2006Q4

REPORT INFORMATION
  Report Type: 
  Country: None (occurrence: None)
  Receive Date: 20061005
  Receipt Date: 20060927
  Transmission Date: 20070319
  Serious: Yes (Hospitalization)
  Sender: FDA-Public Use
  Company Number: JP-ROCHE-464908

PATIENT
  Age: 75 Year
  Sex: Female

DRUGS (6)
  1. PANALDINE [Suspect]
     Indication: TRANSIENT ISCHAEMIC ATTACK
     Route: 048
     Dates: start: 20060821, end: 20060909
  2. ETHYL ICOSAPENTATE [Concomitant]
     Indication: TRANSIENT ISCHAEMIC ATTACK
     Route: 048
     Dates: start: 20060821, end: 20060909
  3. ALFACALCIDOL [Concomitant]
     Indication: OSTEOPOROSIS
     Route: 048
     Dates: start: 20040108
  4. GLAKAY [Concomitant]
     Indication: OSTEOPOROSIS
     Route: 048
     Dates: start: 20040108
  5. ASPIRIN [Concomitant]
     Indication: TRANSIENT ISCHAEMIC ATTACK
     Route: 048
  6. JUVELA NICOTINATE [Concomitant]
     Indication: CEREBROVASCULAR DISORDER
     Route: 048

REACTIONS (5)
  - CYTOLYTIC HEPATITIS [None]
  - HEPATIC FUNCTION ABNORMAL [None]
  - HEPATITIS CHOLESTATIC [None]
  - RASH ERYTHEMATOUS [None]
  - URINE COLOUR ABNORMAL [None]
